FAERS Safety Report 6450176-X (Version None)
Quarter: 2009Q4

REPORT INFORMATION
  Report Type: 
  Country: None (occurrence: None)
  Receive Date: 20091123
  Receipt Date: 20091111
  Transmission Date: 20100525
  Serious: Yes (Hospitalization)
  Sender: FDA-Public Use
  Company Number: GR-ROCHE-666032

PATIENT
  Sex: Female
  Weight: 60.3 kg

DRUGS (8)
  1. METHOXY POLYETHYLENE GLYCOL-EPOETIN BETA [Suspect]
     Dosage: FORM: PRE-FILLED SYRINGE. LAST DOSE PRIOR TO SAE: 07 OCT 2009.
     Route: 042
     Dates: start: 20090706, end: 20091106
  2. AMLODIPINE [Concomitant]
     Dates: start: 20070618
  3. FOLIC ACID [Concomitant]
     Dates: start: 20080820
  4. ISOSORBIDE MONONITRATE [Concomitant]
     Dates: start: 20070603
  5. NEBIVOLOL [Concomitant]
     Dates: start: 20070803
  6. CINACALCET [Concomitant]
     Dates: start: 20090312
  7. ACETYLSALICYLIC ACID [Concomitant]
     Dates: start: 20070603
  8. PAROXETINE HYDROCHLORIDE [Concomitant]
     Dates: start: 20091021

REACTIONS (4)
  - ATRIAL FIBRILLATION [None]
  - GRAFT THROMBOSIS [None]
  - HAEMOGLOBIN DECREASED [None]
  - VASCULAR GRAFT THROMBOSIS [None]
